FAERS Safety Report 8086620-4 (Version None)
Quarter: 2012Q1

REPORT INFORMATION
  Report Type: 
  Country: None (occurrence: None)
  Receive Date: 20120128
  Receipt Date: 20110517
  Transmission Date: 20120608
  Serious: No
  Sender: FDA-Public Use
  Company Number: US-ABBOTT-11P-163-0726329-00

PATIENT
  Age: 50 Year
  Sex: Male

DRUGS (6)
  1. DOXEPIN [Concomitant]
     Indication: PRURITUS
  2. DOXEPIN [Concomitant]
     Indication: URTICARIA
  3. HYDROXYZINE [Concomitant]
     Indication: URTICARIA
  4. DOXYCYCLINE [Concomitant]
     Indication: URTICARIA
  5. ACETAMINOPHEN AND HYDROCODONE BITARTRATE [Concomitant]
     Indication: PAIN
     Dosage: 10/324 MG
  6. HUMIRA [Suspect]
     Indication: PSORIATIC ARTHROPATHY
     Dates: start: 20110502

REACTIONS (2)
  - INCREASED TENDENCY TO BRUISE [None]
  - MUSCLE SPASMS [None]
